FAERS Safety Report 9263554 (Version 1)
Quarter: 2013Q2

REPORT INFORMATION
  Report Type: Spontaneous
  Country: US (occurrence: US)
  Receive Date: 20130430
  Receipt Date: 20130430
  Transmission Date: 20140414
  Serious: Yes (Hospitalization)
  Sender: FDA-Public Use
  Company Number: US-BAYER-2013-052604

PATIENT
  Age: 18 Year
  Sex: Female
  Weight: 62.13 kg

DRUGS (3)
  1. YASMIN [Suspect]
     Indication: DYSMENORRHOEA
  2. LORTAB [Concomitant]
     Indication: PAIN
  3. ASPIRIN [Concomitant]

REACTIONS (3)
  - Subclavian vein thrombosis [None]
  - Axillary vein thrombosis [None]
  - Thrombophlebitis superficial [None]
